FAERS Safety Report 4604104-X (Version None)
Quarter: 2005Q1

REPORT INFORMATION
  Report Type: 
  Country: None (occurrence: None)
  Receive Date: 20050309
  Receipt Date: 20050309
  Transmission Date: 20050727
  Serious: Yes (Hospitalization)
  Sender: FDA-Public Use
  Company Number: None

PATIENT
  Age: 67 Year
  Sex: Male
  Weight: 89.5 kg

DRUGS (2)
  1. PACLITAXEL - MEAD JOHNSON - 300 MG + 100 MG VIALS [Suspect]
     Indication: LUNG NEOPLASM MALIGNANT
     Dosage: 426 MG X1 - PO
     Route: 048
     Dates: start: 20050216
  2. GEMCITABINE - LILLY - 1 GM + 200 MG VIALS [Suspect]
     Indication: LUNG NEOPLASM MALIGNANT
     Dosage: 2130 MG X1 - PO
     Route: 048
     Dates: start: 20050216

REACTIONS (1)
  - PNEUMONIA [None]
